FAERS Safety Report 16007589 (Version 1)
Quarter: 2019Q1

REPORT INFORMATION
  Report Type: Spontaneous
  Country: US (occurrence: US)
  Receive Date: 20190226
  Receipt Date: 20190226
  Transmission Date: 20190418
  Serious: No
  Sender: FDA-Public Use
  Company Number: US-IGSA-SR10007324

PATIENT
  Age: 59 Year
  Sex: Male
  Weight: 88 kg

DRUGS (6)
  1. SINGULAIR [Concomitant]
     Active Substance: MONTELUKAST SODIUM
  2. PROLIA [Concomitant]
     Active Substance: DENOSUMAB
  3. PROLASTIN-C LIQUID [Suspect]
     Active Substance: .ALPHA.1-PROTEINASE INHIBITOR HUMAN
     Indication: ALPHA-1 ANTI-TRYPSIN DEFICIENCY
     Dosage: 5280 MG, Q.WK.
     Route: 042
     Dates: start: 20181114, end: 20181114
  4. HUMIRA [Concomitant]
     Active Substance: ADALIMUMAB
  5. BENRALIZUMAB. [Concomitant]
     Active Substance: BENRALIZUMAB
  6. PROLASTIN-C LIQUID [Suspect]
     Active Substance: .ALPHA.1-PROTEINASE INHIBITOR HUMAN
     Dosage: 5280 MG, Q.WK.
     Route: 042
     Dates: start: 20180806

REACTIONS (1)
  - Dizziness [Recovered/Resolved]

NARRATIVE: CASE EVENT DATE: 20181114
